FAERS Safety Report 5102657-9 (Version None)
Quarter: 2006Q3

REPORT INFORMATION
  Report Type: 
  Country: None (occurrence: None)
  Receive Date: 20060907
  Receipt Date: 20060825
  Transmission Date: 20061208
  Serious: Yes (Death, Life-Threatening, Hospitalization)
  Sender: FDA-Public Use
  Company Number: 2006096814

PATIENT
  Age: 78 Year
  Sex: Female
  Weight: 38.5 kg

DRUGS (3)
  1. ZYVOX [Suspect]
     Indication: STAPHYLOCOCCAL INFECTION
     Dosage: 600 MG (600 MG,1 IN 1 D),INTRAVENOUS
     Route: 042
     Dates: start: 20060710, end: 20060719
  2. MEROPEN (MEROPENEM) [Concomitant]
  3. LIPLE (ALPROSTADIL) [Concomitant]

REACTIONS (7)
  - ANAEMIA [None]
  - CONDITION AGGRAVATED [None]
  - MULTI-ORGAN FAILURE [None]
  - NEPHROGENIC ANAEMIA [None]
  - PLATELET COUNT DECREASED [None]
  - RESPIRATORY DISORDER [None]
  - WOUND [None]
